FAERS Safety Report 24591989 (Version 1)
Quarter: 2024Q4

REPORT INFORMATION
  Report Type: Spontaneous
  Country: FR (occurrence: FR)
  Receive Date: 20241108
  Receipt Date: 20241108
  Transmission Date: 20250114
  Serious: Yes (Other)
  Sender: TEVA
  Company Number: None

PATIENT
  Age: 90 Year
  Sex: Female

DRUGS (3)
  1. TRAMADOL [Suspect]
     Active Substance: TRAMADOL
     Indication: Product used for unknown indication
     Dosage: } 3 TABLETS OF 50 MG/DAY, TRAMADOL BASE
     Route: 048
  2. OXAZEPAM [Suspect]
     Active Substance: OXAZEPAM
     Indication: Product used for unknown indication
     Dosage: AT LEAST 50 MG/DAY
     Route: 048
     Dates: start: 2021
  3. LORMETAZEPAM [Suspect]
     Active Substance: LORMETAZEPAM
     Indication: Product used for unknown indication
     Dosage: AT LEAST 2 TABLETS OF 2 MG/DAY
     Route: 048
     Dates: start: 2021

REACTIONS (1)
  - Drug dependence [Not Recovered/Not Resolved]
